FAERS Safety Report 23446971 (Version 1)
Quarter: 2024Q1

REPORT INFORMATION
  Report Type: Spontaneous
  Country: US (occurrence: US)
  Receive Date: 20240126
  Receipt Date: 20240126
  Transmission Date: 20240410
  Serious: No
  Sender: FDA-Public Use
  Company Number: US-GSKCCFUS-Case-01909880_AE-106415

PATIENT
  Sex: Female

DRUGS (1)
  1. BENLYSTA [Suspect]
     Active Substance: BELIMUMAB
     Indication: Product used for unknown indication
     Dosage: 200 MG (ONCE EVERY TWO WEEKS)
     Route: 058

REACTIONS (3)
  - Visual impairment [Unknown]
  - Photophobia [Unknown]
  - Underdose [Unknown]
